FAERS Safety Report 5490968-7 (Version None)
Quarter: 2007Q4

REPORT INFORMATION
  Report Type: 
  Country: None (occurrence: None)
  Receive Date: 20071019
  Receipt Date: 20071004
  Transmission Date: 20080405
  Serious: Yes (Other)
  Sender: FDA-Public Use
  Company Number: US-PFIZER INC-2007084833

PATIENT
  Sex: Female
  Weight: 81.6 kg

DRUGS (2)
  1. CHANTIX [Suspect]
     Indication: SMOKING CESSATION THERAPY
     Route: 048
     Dates: start: 20070601, end: 20070701
  2. PREMARIN [Concomitant]
     Indication: HOT FLUSH
     Route: 048

REACTIONS (2)
  - BEDRIDDEN [None]
  - HEADACHE [None]
